FAERS Safety Report 12573261 (Version 1)
Quarter: 2016Q3

REPORT INFORMATION
  Report Type: Spontaneous
  Country: US (occurrence: None)
  Receive Date: 20160719
  Receipt Date: 20160719
  Transmission Date: 20161109
  Serious: Yes (Other)
  Sender: FDA-Public Use
  Company Number: None

PATIENT
  Age: 54 Year
  Sex: Female
  Weight: 81.65 kg

DRUGS (4)
  1. RESTORIL [Concomitant]
     Active Substance: TEMAZEPAM
  2. OXYCODONE [Concomitant]
     Active Substance: OXYCODONE
  3. LYSOL SOFT ON SKIN RECKITT BENCKISER [Suspect]
     Active Substance: BENZETHONIUM CHLORIDE
     Indication: INFECTION PROPHYLAXIS
     Dosage: APPLIED TO A SURFACE, USUALLY THE SKIN
     Dates: start: 20160701, end: 20160718
  4. FENTANYL TRANSDERMAL SYSTEM [Concomitant]
     Active Substance: FENTANYL

REACTIONS (4)
  - Application site erythema [None]
  - Application site pruritus [None]
  - Application site swelling [None]
  - Application site rash [None]

NARRATIVE: CASE EVENT DATE: 20160701
